FAERS Safety Report 7676365-4 (Version None)
Quarter: 2011Q3

REPORT INFORMATION
  Report Type: 
  Country: None (occurrence: None)
  Receive Date: 20110811
  Receipt Date: 20110809
  Transmission Date: 20111222
  Serious: No
  Sender: FDA-Public Use
  Company Number: US-PFIZER INC-2011183272

PATIENT
  Sex: Male
  Weight: 108.8 kg

DRUGS (2)
  1. ADVIL LIQUI-GELS [Suspect]
     Dosage: UNK
     Dates: start: 20110601
  2. ADVIL LIQUI-GELS [Suspect]
     Indication: BACK PAIN
     Dosage: UNK
     Dates: start: 20110601

REACTIONS (2)
  - URTICARIA [None]
  - PAIN [None]
